FAERS Safety Report 12855512 (Version 4)
Quarter: 2018Q1

REPORT INFORMATION
  Report Type: Report from Study
  Country: ZA (occurrence: ZA)
  Receive Date: 20161017
  Receipt Date: 20180226
  Transmission Date: 20180508
  Serious: Yes (Death, Life-Threatening, Hospitalization, Disabling)
  Sender: FDA-Public Use
  Company Number: ZA-B.I. PHARMACEUTICALS,INC./RIDGEFIELD-2016-BI-45011BI

PATIENT
  Age: 52 Year
  Sex: Male
  Weight: 60.2 kg

DRUGS (9)
  1. DIOVAN [Concomitant]
     Active Substance: VALSARTAN
     Indication: HYPERTENSION
     Route: 048
  2. STILPANE [Concomitant]
     Indication: PAIN IN EXTREMITY
     Dosage: DAILY DOSE: 1 PRN
     Route: 065
  3. LINAGLIPTIN [Suspect]
     Active Substance: LINAGLIPTIN
     Indication: RENAL IMPAIRMENT
     Route: 048
     Dates: start: 20150820, end: 20160706
  4. SPIRACTIN [Concomitant]
     Indication: VENTRICULAR FAILURE
     Route: 065
  5. METFORMIN [Concomitant]
     Active Substance: METFORMIN HYDROCHLORIDE
     Indication: TYPE 2 DIABETES MELLITUS
     Dosage: UNIT DOSE: 1 G IN MORNING (MANE); 500 MG AT NIGHT (NOCTE); DAILY DOSE: 1.5G
     Route: 065
  6. FUROSEMIDE. [Concomitant]
     Active Substance: FUROSEMIDE
     Indication: VENTRICULAR FAILURE
     Route: 048
  7. ECOTRIN [Concomitant]
     Active Substance: ASPIRIN
     Indication: MYOCARDIAL ISCHAEMIA
     Route: 065
  8. ATORVASTATIN [Concomitant]
     Active Substance: ATORVASTATIN
     Indication: HYPERLIPIDAEMIA
     Route: 065
  9. LINAGLIPTIN [Suspect]
     Active Substance: LINAGLIPTIN
     Indication: TYPE 2 DIABETES MELLITUS

REACTIONS (8)
  - Respiratory distress [Fatal]
  - Septic shock [Unknown]
  - Generalised oedema [Unknown]
  - Cardiogenic shock [Unknown]
  - Renal failure [Unknown]
  - Peripheral vascular disorder [Unknown]
  - Sepsis [Unknown]
  - Myocardial ischaemia [Unknown]

NARRATIVE: CASE EVENT DATE: 20160701
